FAERS Safety Report 17667070 (Version 2)
Quarter: 2020Q4

REPORT INFORMATION
  Report Type: Report from Study
  Country: None (occurrence: US)
  Receive Date: 20200414
  Receipt Date: 20201204
  Transmission Date: 20210113
  Serious: Yes (Other)
  Sender: FDA-Public Use
  Company Number: US-ABBVIE-20K-163-3363282-00

PATIENT
  Sex: Female
  Weight: 35.87 kg

DRUGS (5)
  1. LISINOPRIL. [Concomitant]
     Active Substance: LISINOPRIL
     Indication: HYPERTENSION
  2. CREON [Suspect]
     Active Substance: PANCRELIPASE AMYLASE\PANCRELIPASE LIPASE\PANCRELIPASE PROTEASE
     Indication: PANCREATIC ENZYMES
     Route: 048
     Dates: start: 201909, end: 201911
  3. HYDROCHLOROTHIAZIDE. [Concomitant]
     Active Substance: HYDROCHLOROTHIAZIDE
     Indication: HYPERTENSION
  4. OMEPRAZOLE. [Concomitant]
     Active Substance: OMEPRAZOLE
     Indication: GASTROOESOPHAGEAL REFLUX DISEASE
  5. CREON [Suspect]
     Active Substance: PANCRELIPASE AMYLASE\PANCRELIPASE LIPASE\PANCRELIPASE PROTEASE
     Indication: PANCREATIC FAILURE
     Route: 048
     Dates: start: 202003

REACTIONS (9)
  - Procedural pain [Recovered/Resolved]
  - Oesophageal carcinoma [Recovering/Resolving]
  - Vocal cord disorder [Recovering/Resolving]
  - Radiation injury [Unknown]
  - Lactose intolerance [Not Recovered/Not Resolved]
  - Pancreatic enzymes decreased [Not Recovered/Not Resolved]
  - Dysphagia [Recovering/Resolving]
  - Steatorrhoea [Not Recovered/Not Resolved]
  - Weight decreased [Recovering/Resolving]

NARRATIVE: CASE EVENT DATE: 2019
